FAERS Safety Report 13003462 (Version 1)
Quarter: 2016Q4

REPORT INFORMATION
  Report Type: Spontaneous
  Country: US (occurrence: US)
  Receive Date: 20161206
  Receipt Date: 20161206
  Transmission Date: 20170207
  Serious: Yes (Death, Other)
  Sender: FDA-Public Use
  Company Number: US-GLAXOSMITHKLINE-US2016180089

PATIENT
  Age: 64 Year
  Sex: Female

DRUGS (1)
  1. LAMICTAL XR [Suspect]
     Active Substance: LAMOTRIGINE
     Indication: SEIZURE
     Dosage: 300 MG, QD
     Route: 048
     Dates: start: 2013, end: 20161121

REACTIONS (6)
  - Cardiac failure congestive [Fatal]
  - Acute myocardial infarction [Fatal]
  - Hypertension [Fatal]
  - Fall [Fatal]
  - Thrombosis [Fatal]
  - Femur fracture [Fatal]

NARRATIVE: CASE EVENT DATE: 20161117
